FAERS Safety Report 20223011 (Version 3)
Quarter: 2022Q2

REPORT INFORMATION
  Report Type: Spontaneous
  Country: FR (occurrence: FR)
  Receive Date: 20211223
  Receipt Date: 20220411
  Transmission Date: 20220721
  Serious: Yes (Hospitalization, Other)
  Sender: FDA-Public Use
  Company Number: None

PATIENT
  Age: 34 Year
  Sex: Male

DRUGS (5)
  1. VIAGRA [Suspect]
     Active Substance: SILDENAFIL CITRATE
     Dosage: ONCE/2-3 WEEKS
     Route: 048
  2. CANNABIS SATIVA SUBSP. INDICA TOP [Suspect]
     Active Substance: CANNABIS SATIVA SUBSP. INDICA TOP
     Dosage: UP TO 0.25G / DAY, CAN GO UP TO 2G / DAY
     Route: 045
  3. CANNABIS SATIVA SUBSP. INDICA TOP [Suspect]
     Active Substance: CANNABIS SATIVA SUBSP. INDICA TOP
     Dosage: UP TO 0.25G / DAY, CAN GO UP TO 2G / DAY
     Route: 048
  4. BUTYROLACTONE [Suspect]
     Active Substance: BUTYROLACTONE
     Dosage: ONCE / 2-3 WEEKS
     Route: 048
  5. ALCOHOL [Suspect]
     Active Substance: ALCOHOL
     Dosage: 5 DAYS A WEEK: 3 TO 4 WINE GLASSES OR 2 TO 3 PINTS OF BEER OVER A DAY
     Route: 048

REACTIONS (1)
  - Substance use disorder [Not Recovered/Not Resolved]

NARRATIVE: CASE EVENT DATE: 20170101
